FAERS Safety Report 24933924 (Version 2)
Quarter: 2025Q3

REPORT INFORMATION
  Report Type: Report from Study
  Country: GB (occurrence: GB)
  Receive Date: 20250206
  Receipt Date: 20250731
  Transmission Date: 20251020
  Serious: Yes (Other)
  Sender: NOVARTIS
  Company Number: GB-002147023-NVSC2025GB019718

PATIENT
  Sex: Female

DRUGS (1)
  1. KESIMPTA [Suspect]
     Active Substance: OFATUMUMAB
     Indication: Multiple sclerosis
     Dosage: 20 MG, QMO
     Route: 058
     Dates: start: 20240327

REACTIONS (4)
  - Multiple sclerosis [Unknown]
  - Paraesthesia [Unknown]
  - Illness [Unknown]
  - Product distribution issue [Unknown]
